FAERS Safety Report 9435949 (Version 1)
Quarter: 2013Q3

REPORT INFORMATION
  Report Type: Spontaneous
  Country: PT (occurrence: PT)
  Receive Date: 20130801
  Receipt Date: 20130801
  Transmission Date: 20140515
  Serious: Yes (Death, Hospitalization)
  Sender: FDA-Public Use
  Company Number: PT-BAXTER-2013BAX019656

PATIENT
  Age: 59 Year
  Sex: Male

DRUGS (3)
  1. PHYSIONEAL 40 GLUCOSE 1,36% P/V / 13,6 MG/ML [Suspect]
     Indication: RENAL FAILURE CHRONIC
     Route: 033
     Dates: start: 20090525
  2. PHYSIONEAL 40 GLUCOSE 3,86% P/V / 38,6 MG/ML [Suspect]
     Indication: RENAL FAILURE CHRONIC
     Route: 033
     Dates: start: 20090525
  3. EXTRANEAL 75MG/ML - SACO - 5 UNIDADE(S) - 2000 ML [Suspect]
     Indication: RENAL FAILURE CHRONIC
     Route: 033
     Dates: start: 20090525

REACTIONS (2)
  - Condition aggravated [Fatal]
  - General physical health deterioration [Unknown]
